FAERS Safety Report 8107711-5 (Version None)
Quarter: 2012Q1

REPORT INFORMATION
  Report Type: 
  Country: None (occurrence: None)
  Receive Date: 20120202
  Receipt Date: 20120130
  Transmission Date: 20120608
  Serious: Yes (Other)
  Sender: FDA-Public Use
  Company Number: US-JNJFOC-20120113033

PATIENT
  Sex: Female
  Weight: 95.26 kg

DRUGS (13)
  1. ACETAMINOPHEN [Suspect]
     Route: 065
  2. MISOPROSTOL [Suspect]
     Indication: PRODUCT USED FOR UNKNOWN INDICATION
     Route: 065
  3. VITAMIN (PRENATAL) [Concomitant]
  4. FERROUS GLUCONATE [Concomitant]
     Indication: ANAEMIA
  5. PHENOBARBITAL TAB [Suspect]
     Indication: CONVULSION
     Route: 065
  6. TOPAMAX [Suspect]
     Indication: EPILEPSY
     Route: 048
  7. PREVACID [Suspect]
     Indication: DYSPEPSIA
     Route: 065
  8. NASONEX [Suspect]
     Indication: HYPERSENSITIVITY
     Route: 065
  9. LORATADINE [Suspect]
     Indication: MULTIPLE ALLERGIES
     Route: 065
  10. ACETAMINOPHEN [Suspect]
     Indication: PAIN
     Route: 065
  11. PROMETHAZINE HCL [Suspect]
     Indication: PRODUCT USED FOR UNKNOWN INDICATION
     Route: 065
  12. BUTORPHANOL TARTRATE [Suspect]
     Indication: PRODUCT USED FOR UNKNOWN INDICATION
     Route: 065
  13. LAMICTAL [Suspect]
     Indication: CONVULSION
     Route: 065

REACTIONS (3)
  - MATERNAL EXPOSURE DURING PREGNANCY [None]
  - ANXIETY [None]
  - DEPRESSION [None]
